FAERS Safety Report 5370904-4 (Version None)
Quarter: 2007Q2

REPORT INFORMATION
  Report Type: 
  Country: None (occurrence: None)
  Receive Date: 20070626
  Receipt Date: 20070611
  Transmission Date: 20071010
  Serious: No
  Sender: FDA-Public Use
  Company Number: US-SHR-US-2007-011476

PATIENT
  Age: 53 Year
  Sex: Female

DRUGS (4)
  1. BETASERON [Suspect]
     Dosage: 8 MIU, EVERY 2D
     Route: 058
     Dates: start: 19940927, end: 20070306
  2. BETASERON [Suspect]
     Dosage: 4 MIU, EVERY 2D
     Route: 058
     Dates: start: 20070501
  3. BETASERON [Suspect]
     Dosage: 8 MIU, EVERY 2D
     Route: 058
  4. CORTICOSTEROIDS [Concomitant]
     Dosage: UNK, UNK
     Route: 042

REACTIONS (6)
  - BONE SCAN ABNORMAL [None]
  - INJECTION SITE ABSCESS [None]
  - INTERVERTEBRAL DISC PROTRUSION [None]
  - NUCLEAR MAGNETIC RESONANCE IMAGING ABNORMAL [None]
  - PAIN [None]
  - SPINAL CORD DISORDER [None]
